FAERS Safety Report 9403395 (Version 1)
Quarter: 2013Q3

REPORT INFORMATION
  Report Type: Spontaneous
  Country: CA (occurrence: CA)
  Receive Date: 20130716
  Receipt Date: 20130716
  Transmission Date: 20140515
  Serious: Yes (Hospitalization)
  Sender: FDA-Public Use
  Company Number: CA-BAXTER-2013BAX026466

PATIENT
  Age: 58 Year
  Sex: Male

DRUGS (5)
  1. DIANEAL PD4 SOLUTION WITH 2.5% DEXTROSE AND 2.5 MEQ/L CALCIUM [Suspect]
     Indication: PERITONEAL DIALYSIS
     Dosage: 1 BAG
     Route: 033
  2. DIANEAL PD4 SOLUTION WITH 4.25% DEXTROSE AND 2.5 MEQ/L CALCIUM [Suspect]
     Indication: PERITONEAL DIALYSIS
     Dosage: 1 BAG
     Route: 033
  3. DIANEAL PD4 SOLUTION WITH 4.25% DEXTROSE AND 2.5 MEQ/L CALCIUM [Suspect]
     Dosage: 2 BAG
     Route: 033
  4. EXTRANEAL [Suspect]
     Indication: PERITONEAL DIALYSIS
     Dosage: 1 BAG
     Route: 033
  5. EXTRANEAL [Suspect]
     Dosage: 2 BAG
     Route: 033

REACTIONS (1)
  - Cardiac failure congestive [Recovering/Resolving]
